FAERS Safety Report 24775782 (Version 1)
Quarter: 2024Q4

REPORT INFORMATION
  Report Type: Spontaneous
  Country: JP (occurrence: JP)
  Receive Date: 20241226
  Receipt Date: 20241226
  Transmission Date: 20250115
  Serious: Yes (Hospitalization)
  Sender: ALEXION PHARMACEUTICALS
  Company Number: JP-AstraZeneca-CH-00770367A

PATIENT
  Age: 11 Month

DRUGS (1)
  1. SOLIRIS [Suspect]
     Active Substance: ECULIZUMAB
     Indication: Atypical haemolytic uraemic syndrome
     Dosage: 300 MILLIGRAM, QW

REACTIONS (3)
  - Mydriasis [Not Recovered/Not Resolved]
  - Pupillary reflex impaired [Unknown]
  - Electroencephalogram abnormal [Unknown]
